FAERS Safety Report 23438080 (Version 3)
Quarter: 2024Q1

REPORT INFORMATION
  Report Type: Spontaneous
  Country: GB (occurrence: GB)
  Receive Date: 20240124
  Receipt Date: 20240226
  Transmission Date: 20240410
  Serious: Yes (Other)
  Sender: FDA-Public Use
  Company Number: GB-MYLANLABS-2024M1006053

PATIENT
  Age: 40 Year
  Sex: Male

DRUGS (1)
  1. CLOZARIL [Suspect]
     Active Substance: CLOZAPINE
     Indication: Schizophrenia
     Dosage: UNK
     Route: 048
     Dates: start: 20071130

REACTIONS (6)
  - Eosinophilia [Not Recovered/Not Resolved]
  - Neutrophilia [Unknown]
  - Fungal infection [Unknown]
  - White blood cell count increased [Unknown]
  - Therapy interrupted [Unknown]
  - Body tinea [Unknown]

NARRATIVE: CASE EVENT DATE: 20240116
